FAERS Safety Report 11636606 (Version 1)
Quarter: 2015Q4

REPORT INFORMATION
  Report Type: Spontaneous
  Country: DE (occurrence: DE)
  Receive Date: 20151016
  Receipt Date: 20151016
  Transmission Date: 20160304
  Serious: Yes (Other)
  Sender: FDA-Public Use
  Company Number: DE-SUN PHARMACEUTICAL INDUSTRIES LTD-2015RR-104504

PATIENT

DRUGS (2)
  1. VENLAFAXINE [Suspect]
     Active Substance: VENLAFAXINE HYDROCHLORIDE
     Indication: DEPRESSION
     Dosage: 150 MG, QD, GESTATIONAL WEEK 0-35.6
     Route: 064
     Dates: start: 20141127, end: 20150805
  2. DOPPELHERZ [Concomitant]
     Indication: PROPHYLAXIS OF NEURAL TUBE DEFECT
     Dosage: 0.8 MG, DAILY, 0-26.3 GESTATIONAL WEEK
     Route: 064
     Dates: start: 20141127, end: 20150531

REACTIONS (5)
  - Temperature regulation disorder [Recovered/Resolved]
  - Respiratory disorder neonatal [Recovered/Resolved]
  - Premature baby [Recovered/Resolved]
  - Feeding disorder [Recovered/Resolved]
  - Maternal drugs affecting foetus [None]

NARRATIVE: CASE EVENT DATE: 20150805
